FAERS Safety Report 7265284-3 (Version None)
Quarter: 2011Q1

REPORT INFORMATION
  Report Type: 
  Country: None (occurrence: None)
  Receive Date: 20110131
  Receipt Date: 20110127
  Transmission Date: 20110831
  Serious: No
  Sender: FDA-Public Use
  Company Number: US-ROXANE LABORATORIES, INC.-2010-RO-01536RO

PATIENT
  Sex: Female

DRUGS (1)
  1. CALCITRIOL [Suspect]

REACTIONS (2)
  - PRODUCT TASTE ABNORMAL [None]
  - MEDICATION ERROR [None]
